FAERS Safety Report 23326133 (Version 1)
Quarter: 2023Q4

REPORT INFORMATION
  Report Type: Spontaneous
  Country: US (occurrence: US)
  Receive Date: 20231221
  Receipt Date: 20231221
  Transmission Date: 20240110
  Serious: Yes (Hospitalization)
  Sender: FDA-Public Use
  Company Number: US-ELI_LILLY_AND_COMPANY-US202312010911

PATIENT
  Sex: Female

DRUGS (2)
  1. ERBITUX [Suspect]
     Active Substance: CETUXIMAB
     Indication: Colorectal cancer metastatic
     Dosage: UNK UNK, UNKNOWN
     Route: 065
  2. KRAZATI [Concomitant]
     Active Substance: ADAGRASIB
     Indication: Colorectal cancer metastatic

REACTIONS (2)
  - Intracranial pressure increased [Unknown]
  - Headache [Unknown]
